FAERS Safety Report 5028849-5 (Version None)
Quarter: 2006Q2

REPORT INFORMATION
  Report Type: 
  Country: None (occurrence: None)
  Receive Date: 20060501
  Receipt Date: 20060304
  Transmission Date: 20061013
  Serious: No
  Sender: FDA-Public Use
  Company Number: 200612192US

PATIENT
  Age: 37 Year
  Sex: Female
  Weight: 60.45 kg

DRUGS (5)
  1. KETEK [Suspect]
     Indication: SINUSITIS
     Dosage: 400 MG QD PO
     Route: 048
     Dates: start: 20060303, end: 20060304
  2. BUPROPION HYDROCHLORIDE (WELLBUTRIN - SLOW RELEASE) [Concomitant]
  3. ZYRTEC [Concomitant]
  4. VALACICLOVIR HYDROCHLORIDE (VALTREX) [Concomitant]
  5. GUAIFENESIN (HUMIBID) [Concomitant]

REACTIONS (4)
  - FEELING ABNORMAL [None]
  - MEMORY IMPAIRMENT [None]
  - MENTAL IMPAIRMENT [None]
  - PARAESTHESIA [None]
